APPROVED DRUG PRODUCT: OTOVEL
Active Ingredient: CIPROFLOXACIN HYDROCHLORIDE; FLUOCINOLONE ACETONIDE
Strength: EQ 0.3% BASE;0.025%
Dosage Form/Route: SOLUTION/DROPS;OTIC
Application: N208251 | Product #001
Applicant: LABORATORIOS SALVAT SA
Approved: Apr 29, 2016 | RLD: Yes | RS: Yes | Type: RX

PATENTS:
Patent 8932610 | Expires: Mar 24, 2030